FAERS Safety Report 23740852 (Version 1)
Quarter: 2024Q2

REPORT INFORMATION
  Report Type: Spontaneous
  Country: GB (occurrence: None)
  Receive Date: 20240415
  Receipt Date: 20240415
  Transmission Date: 20240716
  Serious: Yes (Other)
  Sender: FDA-Public Use
  Company Number: GB-ROCHE-3410863

PATIENT
  Sex: Male

DRUGS (1)
  1. PULMOZYME [Suspect]
     Active Substance: DORNASE ALFA
     Indication: Product used for unknown indication
     Dosage: 2500 IU NEB 2.5 ML
     Route: 055

REACTIONS (3)
  - Device breakage [Unknown]
  - Product dose omission issue [Unknown]
  - Autism spectrum disorder [Recovered/Resolved]
